FAERS Safety Report 14497928 (Version 1)
Quarter: 2018Q1

REPORT INFORMATION
  Report Type: Spontaneous
  Country: CA (occurrence: CA)
  Receive Date: 20180207
  Receipt Date: 20180207
  Transmission Date: 20180509
  Serious: Yes (Hospitalization)
  Sender: FDA-Public Use
  Company Number: CA-PFIZER INC-2018049422

PATIENT
  Age: 46 Year
  Sex: Male
  Weight: 81 kg

DRUGS (1)
  1. PRISTIQ EXTENDED-RELEASE [Suspect]
     Active Substance: DESVENLAFAXINE SUCCINATE
     Dosage: UNK
     Route: 048

REACTIONS (9)
  - Heart rate increased [Unknown]
  - Tremor [Unknown]
  - Burning sensation [Unknown]
  - Nervousness [Unknown]
  - Hyperhidrosis [Unknown]
  - Hot flush [Unknown]
  - Blood pressure increased [Unknown]
  - Oedema [Unknown]
  - Chest pain [Unknown]
